FAERS Safety Report 7362264-4 (Version None)
Quarter: 2011Q1

REPORT INFORMATION
  Report Type: 
  Country: None (occurrence: None)
  Receive Date: 20110309
  Receipt Date: 20110215
  Transmission Date: 20110831
  Serious: Yes (Hospitalization, Other)
  Sender: FDA-Public Use
  Company Number: JPI-P-013913

PATIENT
  Age: 52 Year
  Sex: Male

DRUGS (2)
  1. XYREM [Suspect]
     Indication: HYPERSOMNIA
     Dosage: 4.5 GM (2.25 GM, 2 IN 1 D), ORAL/2.5 GM SECOND DOSE), ORAL
     Route: 048
     Dates: start: 20091130
  2. XYREM [Suspect]
     Indication: HYPERSOMNIA
     Dosage: 4.5 GM (2.25 GM, 2 IN 1 D), ORAL/2.5 GM SECOND DOSE), ORAL
     Route: 048
     Dates: start: 20070110, end: 20091129

REACTIONS (6)
  - INITIAL INSOMNIA [None]
  - AMNESIA [None]
  - SOMNOLENCE [None]
  - IMMOBILE [None]
  - JOINT INJURY [None]
  - FALL [None]
